FAERS Safety Report 9700354 (Version 1)
Quarter: 2013Q4

REPORT INFORMATION
  Report Type: Spontaneous
  Country: IT (occurrence: IT)
  Receive Date: 20131121
  Receipt Date: 20131121
  Transmission Date: 20140711
  Serious: Yes (Death)
  Sender: FDA-Public Use
  Company Number: IT-ROXANE LABORATORIES, INC.-2013-BI-37670GD

PATIENT
  Age: 19 Year
  Sex: Male

DRUGS (7)
  1. DEXTROMETHORPHAN [Suspect]
  2. PARACETAMOL [Suspect]
  3. MORPHINE [Suspect]
  4. CODEINE [Suspect]
  5. CAFFEINE [Suspect]
  6. METHORPHAN [Suspect]
  7. LIDOCAINE [Suspect]

REACTIONS (3)
  - Overdose [Fatal]
  - Drug abuse [Fatal]
  - Pulmonary oedema [Fatal]
